FAERS Safety Report 26216028 (Version 1)
Quarter: 2025Q4

REPORT INFORMATION
  Report Type: Spontaneous
  Country: GB (occurrence: GB)
  Receive Date: 20251231
  Receipt Date: 20251231
  Transmission Date: 20260117
  Serious: Yes (Other)
  Sender: DR REDDYS
  Company Number: None

PATIENT
  Age: 91 Year
  Sex: Female
  Weight: 60 kg

DRUGS (6)
  1. MEMANTINE [Suspect]
     Active Substance: MEMANTINE
     Indication: Product used for unknown indication
     Dates: start: 20251028, end: 20251125
  2. MEMANTINE [Suspect]
     Active Substance: MEMANTINE
     Dosage: USE AS DIRECTED
     Dates: start: 20251212
  3. NITROFURANTOIN [Concomitant]
     Active Substance: NITROFURANTOIN
     Indication: Product used for unknown indication
     Dosage: TAKE ONE TWICE DAILY FOR 4 DAYS
     Dates: start: 20251028, end: 20251101
  4. LORATADINE [Concomitant]
     Active Substance: LORATADINE
     Indication: Product used for unknown indication
     Dosage: TAKE ONE DAILY
     Dates: start: 20251212
  5. EVACAL [Concomitant]
     Indication: Product used for unknown indication
     Dosage: CHEW TWO TABLETS ONCE A DAY WITH LUNCH
     Dates: start: 20250714
  6. MIRTAZAPINE [Concomitant]
     Active Substance: MIRTAZAPINE
     Indication: Product used for unknown indication
     Dosage: TAKE ONE TABLET AT BEDTIME
     Dates: start: 20250908

REACTIONS (4)
  - Swelling face [Unknown]
  - Rash macular [Recovering/Resolving]
  - Rash [Unknown]
  - Pruritus [Unknown]
